FAERS Safety Report 7245288-7 (Version None)
Quarter: 2011Q1

REPORT INFORMATION
  Report Type: 
  Country: None (occurrence: None)
  Receive Date: 20110126
  Receipt Date: 20110119
  Transmission Date: 20110831
  Serious: Yes (Other)
  Sender: FDA-Public Use
  Company Number: FR-TYCO HEALTHCARE/MALLINCKRODT-T201100082

PATIENT
  Age: 40 Year
  Sex: Female

DRUGS (1)
  1. OPTIJECT [Suspect]
     Dosage: 50 ML, SINGLE
     Route: 042

REACTIONS (1)
  - ANGIOEDEMA [None]
